FAERS Safety Report 8391135-X (Version None)
Quarter: 2012Q2

REPORT INFORMATION
  Report Type: 
  Country: None (occurrence: None)
  Receive Date: 20120529
  Receipt Date: 20120522
  Transmission Date: 20120825
  Serious: Yes (Other)
  Sender: FDA-Public Use
  Company Number: US-B.I. PHARMACEUTICALS,INC./RIDGEFIELD-2012-BP-06202BP

PATIENT
  Sex: Female

DRUGS (4)
  1. LOPID [Concomitant]
     Dosage: 1200 MG
     Route: 048
     Dates: start: 20050101
  2. PRADAXA [Suspect]
     Indication: ATRIAL FIBRILLATION
     Route: 048
     Dates: start: 20111227
  3. AMIODARONE HCL [Concomitant]
     Dosage: 200 MG
     Route: 048
     Dates: start: 20120315, end: 20120324
  4. CARDIZEM CD [Concomitant]
     Dosage: 240 MG
     Route: 048
     Dates: start: 20111227

REACTIONS (1)
  - TRANSIENT ISCHAEMIC ATTACK [None]
